FAERS Safety Report 5576386-1 (Version None)
Quarter: 2007Q4

REPORT INFORMATION
  Report Type: 
  Country: None (occurrence: None)
  Receive Date: 20071130
  Receipt Date: 20070917
  Transmission Date: 20080405
  Serious: No
  Sender: FDA-Public Use
  Company Number: US200709003524

PATIENT
  Age: 40 Year
  Sex: Female
  Weight: 102 kg

DRUGS (2)
  1. BYETTA [Suspect]
     Indication: TYPE 2 DIABETES MELLITUS
     Dosage: 5 UG, SUBCUTANEOUS
     Route: 058
     Dates: start: 20070601
  2. METFORMIN HCL [Concomitant]

REACTIONS (7)
  - BLOOD GLUCOSE DECREASED [None]
  - DECREASED APPETITE [None]
  - HEART RATE INCREASED [None]
  - PRESYNCOPE [None]
  - RESPIRATORY RATE INCREASED [None]
  - TREMOR [None]
  - WEIGHT DECREASED [None]
